FAERS Safety Report 20351473 (Version 1)
Quarter: 2022Q1

REPORT INFORMATION
  Report Type: Report from Study
  Country: CA (occurrence: CA)
  Receive Date: 20220119
  Receipt Date: 20220119
  Transmission Date: 20220424
  Serious: Yes (Death, Hospitalization)
  Sender: FDA-Public Use
  Company Number: CA-ABBVIE-21K-028-4128203-00

PATIENT
  Sex: Female

DRUGS (1)
  1. RINVOQ [Suspect]
     Active Substance: UPADACITINIB
     Indication: Rheumatoid arthritis
     Route: 048
     Dates: start: 20211004, end: 202110

REACTIONS (9)
  - Pneumonia [Fatal]
  - Lung disorder [Fatal]
  - Renal failure [Fatal]
  - Hiccups [Unknown]
  - Defaecation disorder [Unknown]
  - Dysphagia [Unknown]
  - Influenza [Recovering/Resolving]
  - Mobility decreased [Unknown]
  - Dysstasia [Unknown]

NARRATIVE: CASE EVENT DATE: 20210101
